FAERS Safety Report 19912833 (Version 1)
Quarter: 2021Q4

REPORT INFORMATION
  Report Type: Report from Study
  Country: US (occurrence: US)
  Receive Date: 20211004
  Receipt Date: 20211004
  Transmission Date: 20220304
  Serious: Yes (Hospitalization)
  Sender: FDA-Public Use
  Company Number: US-TAKEDA-US202010381

PATIENT
  Age: 48 Year
  Sex: Female

DRUGS (1)
  1. CUVITRU [Suspect]
     Active Substance: HUMAN IMMUNOGLOBULIN G
     Indication: Primary immunodeficiency syndrome
     Dosage: 12 GRAM, 1/WEEK
     Route: 065

REACTIONS (6)
  - Cardiac disorder [Unknown]
  - Uterine polyp [Unknown]
  - Seasonal allergy [Unknown]
  - Chronic sinusitis [Recovering/Resolving]
  - Tarsal tunnel syndrome [Unknown]
  - Limb mass [Unknown]

NARRATIVE: CASE EVENT DATE: 20200317
